FAERS Safety Report 6983750-2 (Version None)
Quarter: 2010Q3

REPORT INFORMATION
  Report Type: 
  Country: None (occurrence: None)
  Receive Date: 20100914
  Receipt Date: 20020314
  Transmission Date: 20110219
  Serious: Yes (Hospitalization)
  Sender: FDA-Public Use
  Company Number: US-WYE-H07132208

PATIENT
  Age: 62 Year
  Sex: Male

DRUGS (1)
  1. IBUPROFEN [Suspect]
     Indication: OSTEOARTHRITIS
     Dosage: 10 TO 12 TABLETS PER DAY
     Route: 048
     Dates: start: 20000821, end: 20000822

REACTIONS (4)
  - DIZZINESS [None]
  - GASTROINTESTINAL HAEMORRHAGE [None]
  - OVERDOSE [None]
  - RECTAL HAEMORRHAGE [None]
